FAERS Safety Report 9450562 (Version 1)
Quarter: 2013Q3

REPORT INFORMATION
  Report Type: Spontaneous
  Country: FR (occurrence: FR)
  Receive Date: 20130809
  Receipt Date: 20130809
  Transmission Date: 20140515
  Serious: Yes (Death, Hospitalization, Disabling, Other)
  Sender: FDA-Public Use
  Company Number: FR-PFIZER INC-2013230243

PATIENT
  Age: 73 Year
  Sex: Male
  Weight: 72 kg

DRUGS (7)
  1. TAHOR [Suspect]
     Dosage: 80 MG, DAILY
     Route: 048
     Dates: start: 201203
  2. AMLOR [Suspect]
     Dosage: 10 MG, DAILY
     Route: 048
     Dates: start: 201203
  3. TRIATEC [Suspect]
     Dosage: 2.5 MG, 2X/DAY
     Route: 048
     Dates: start: 201203
  4. PROCORALAN [Suspect]
     Dosage: 5 MG, UNK
     Route: 048
     Dates: start: 201203, end: 20120415
  5. PLAVIX [Suspect]
     Dosage: 75 MG, DAILY
     Route: 048
     Dates: start: 201203
  6. LOPRESSOR [Suspect]
     Dosage: 100 MG, 2X/DAY
     Route: 048
     Dates: start: 201203
  7. DISCOTRINE [Suspect]
     Dosage: 5 MG, DAILY
     Route: 062
     Dates: start: 201203

REACTIONS (16)
  - Pulmonary fibrosis [Fatal]
  - Angina pectoris [Unknown]
  - Lobar pneumonia [Unknown]
  - Bronchitis [Unknown]
  - Condition aggravated [Unknown]
  - Gastrointestinal pain [Unknown]
  - Pelvic pain [Unknown]
  - Hyperhidrosis [Unknown]
  - Abdominal pain [Unknown]
  - Body temperature decreased [Unknown]
  - Cough [Unknown]
  - Pyrexia [Unknown]
  - Tremor [Unknown]
  - Asthenia [Unknown]
  - Decreased appetite [Unknown]
  - Weight decreased [Unknown]
